FAERS Safety Report 8261222-5 (Version None)
Quarter: 2012Q2

REPORT INFORMATION
  Report Type: 
  Country: None (occurrence: None)
  Receive Date: 20120405
  Receipt Date: 20120328
  Transmission Date: 20120825
  Serious: Yes (Other)
  Sender: FDA-Public Use
  Company Number: KR-US-EMD SERONO, INC.-7122349

PATIENT
  Sex: Female
  Weight: 87 kg

DRUGS (3)
  1. REBIF [Suspect]
     Indication: MULTIPLE SCLEROSIS
     Route: 058
     Dates: start: 20110412
  2. UNKNOWN MEDICATION [Suspect]
     Indication: INCREASED APPETITE
     Route: 048
     Dates: start: 20110101, end: 20110101
  3. ADRENAL CORTICOSTEROID AGENT [Suspect]
     Indication: INFLAMMATION
     Route: 042
     Dates: start: 20110101, end: 20110101

REACTIONS (1)
  - OSTEONECROSIS [None]
